FAERS Safety Report 10085289 (Version 2)
Quarter: 2014Q2

REPORT INFORMATION
  Report Type: Spontaneous
  Country: US (occurrence: US)
  Receive Date: 20140417
  Receipt Date: 20140611
  Transmission Date: 20141212
  Serious: No
  Sender: FDA-Public Use
  Company Number: US-009507513-1404USA008019

PATIENT
  Age: 78 Year
  Sex: Female

DRUGS (1)
  1. CLARITIN [Suspect]
     Indication: RHINORRHOEA
     Dosage: UNK, QD
     Route: 048
     Dates: start: 20140326, end: 20140404

REACTIONS (1)
  - Drug ineffective [Unknown]
